FAERS Safety Report 7328851-4 (Version None)
Quarter: 2011Q1

REPORT INFORMATION
  Report Type: 
  Country: None (occurrence: None)
  Receive Date: 20110303
  Receipt Date: 20110224
  Transmission Date: 20110831
  Serious: Yes (Other)
  Sender: FDA-Public Use
  Company Number: CN-ROCHE-761967

PATIENT
  Age: 49 Year
  Sex: Male
  Weight: 79 kg

DRUGS (2)
  1. CAPECITABINE [Suspect]
     Indication: RECTAL CANCER
     Route: 048
     Dates: start: 20100701, end: 20100901
  2. OXALIPLATIN [Concomitant]
     Indication: RECTAL CANCER
     Route: 041
     Dates: start: 20100701, end: 20100901

REACTIONS (2)
  - METASTASES TO BONE [None]
  - WEIGHT DECREASED [None]
